FAERS Safety Report 9657501 (Version 1)
Quarter: 2013Q4

REPORT INFORMATION
  Report Type: Spontaneous
  Country: US (occurrence: US)
  Receive Date: 20131030
  Receipt Date: 20131030
  Transmission Date: 20140711
  Serious: Yes (Other)
  Sender: FDA-Public Use
  Company Number: US-NAPPMUNDI-USA-2012-0082610

PATIENT
  Age: 26 Year
  Sex: Female

DRUGS (3)
  1. OXYCONTIN TABLETS [Suspect]
     Indication: ANALGESIC THERAPY
  2. VICODIN [Suspect]
     Indication: ANALGESIC THERAPY
  3. PERCOCET /00446701/ [Suspect]
     Indication: ANALGESIC THERAPY

REACTIONS (1)
  - Drug dependence [Unknown]
